FAERS Safety Report 5038227-0 (Version None)
Quarter: 2006Q2

REPORT INFORMATION
  Report Type: 
  Country: None (occurrence: None)
  Receive Date: 20060601
  Receipt Date: 20060124
  Transmission Date: 20061013
  Serious: No
  Sender: FDA-Public Use
  Company Number: 2006PV007546

PATIENT
  Age: 57 Year
  Sex: Female
  Weight: 151.955 kg

DRUGS (5)
  1. BYETTA [Suspect]
     Indication: DIABETES MELLITUS NON-INSULIN-DEPENDENT
     Dosage: 5 MCG;BID;SC
     Route: 058
     Dates: start: 20060120
  2. GLUCOPHAGE [Concomitant]
  3. GLYBURIDE [Concomitant]
  4. AVANDIA [Concomitant]
  5. PROGESTERONE [Concomitant]

REACTIONS (5)
  - FEELING JITTERY [None]
  - HEART RATE INCREASED [None]
  - POLLAKIURIA [None]
  - TENSION [None]
  - WEIGHT DECREASED [None]
